FAERS Safety Report 6134806-8 (Version None)
Quarter: 2009Q1

REPORT INFORMATION
  Report Type: 
  Country: None (occurrence: None)
  Receive Date: 20090327
  Receipt Date: 20090318
  Transmission Date: 20090719
  Serious: Yes (Life-Threatening, Hospitalization)
  Sender: FDA-Public Use
  Company Number: IT-PFIZER INC-2009186291

PATIENT

DRUGS (3)
  1. SUTENT [Suspect]
     Indication: RENAL CANCER
     Dosage: 50 MG DAILY
     Dates: start: 20080821, end: 20090305
  2. OMNIC [Concomitant]
  3. EUTIROX [Concomitant]
     Route: 048

REACTIONS (2)
  - HEPATIC FAILURE [None]
  - MULTI-ORGAN FAILURE [None]
